FAERS Safety Report 8607009 (Version 3)
Quarter: 2014Q1

REPORT INFORMATION
  Report Type: Spontaneous
  Country: US (occurrence: US)
  Receive Date: 20120611
  Receipt Date: 20140109
  Transmission Date: 20141002
  Serious: Yes (Disabling)
  Sender: FDA-Public Use
  Company Number: US-ASTRAZENECA-2012SE34657

PATIENT
  Age: 16346 Day
  Sex: Male

DRUGS (21)
  1. NEXIUM [Suspect]
     Indication: GASTROOESOPHAGEAL REFLUX DISEASE
     Route: 048
     Dates: start: 2003
  2. NEXIUM [Suspect]
     Indication: GASTROOESOPHAGEAL REFLUX DISEASE
     Route: 048
     Dates: start: 20090903
  3. PREDNISONE [Concomitant]
     Indication: INFLAMMATION
  4. SYNTHROID [Concomitant]
     Indication: THYROID DISORDER
  5. DEPO TESTOSTERONE [Concomitant]
     Indication: HORMONE THERAPY
     Dosage: 200
  6. TRICOR [Concomitant]
     Indication: BLOOD CHOLESTEROL ABNORMAL
     Dates: start: 20090902
  7. HYDROCODONE [Concomitant]
     Indication: BONE PAIN
     Dosage: 5/3 25
  8. PRO AIR [Concomitant]
     Dosage: 90
  9. ASPIRIN [Concomitant]
  10. PRILOSEC [Concomitant]
  11. ZOLPIDEM [Concomitant]
  12. LEXAPRO [Concomitant]
  13. ALENDRONATE SODIUM [Concomitant]
     Dates: start: 20091103
  14. LORAZEPAM [Concomitant]
     Dates: start: 20100104
  15. FLUTICASONE [Concomitant]
  16. TRAZODONE [Concomitant]
  17. PROMETHAZINE [Concomitant]
     Dates: start: 20100104
  18. GEMFIBROZIL [Concomitant]
     Dates: start: 20101213
  19. MELOXICAM [Concomitant]
     Dates: start: 20121030
  20. TAMOXIFEN [Concomitant]
     Dates: start: 20121030
  21. NYSTATIN [Concomitant]
     Dates: start: 20121030

REACTIONS (6)
  - Arthropathy [Unknown]
  - Pain in extremity [Unknown]
  - Impaired work ability [Unknown]
  - Osteoporosis [Unknown]
  - Fibula fracture [Unknown]
  - Glaucoma [Unknown]
